FAERS Safety Report 13082050 (Version 1)
Quarter: 2017Q1

REPORT INFORMATION
  Report Type: Spontaneous
  Country: US (occurrence: FR)
  Receive Date: 20170103
  Receipt Date: 20170103
  Transmission Date: 20170428
  Serious: Yes (Life-Threatening, Hospitalization, Other)
  Sender: FDA-Public Use
  Company Number: US-BAYER-2017-000299

PATIENT
  Age: 30 Year
  Sex: Male

DRUGS (4)
  1. TRANEXAMIC ACID. [Concomitant]
     Active Substance: TRANEXAMIC ACID
     Indication: ASTHMA
  2. TRANEXAMIC ACID. [Concomitant]
     Active Substance: TRANEXAMIC ACID
     Indication: ABDOMINAL SYMPTOM
     Route: 045
  3. GLYCEROLTRINITRAT [Concomitant]
     Indication: MUSCLE SPASMS
     Dosage: UNK
  4. KETOPROFEN (SYSTEMIC FORMULATION) [Suspect]
     Active Substance: KETOPROFEN
     Indication: ABDOMINAL PAIN
     Dates: start: 201309

REACTIONS (3)
  - Cardiac arrest [Recovered/Resolved]
  - Angina pectoris [Recovered/Resolved]
  - Ventricular fibrillation [Recovered/Resolved]

NARRATIVE: CASE EVENT DATE: 201309
